FAERS Safety Report 4287289-7 (Version None)
Quarter: 2004Q1

REPORT INFORMATION
  Report Type: 
  Country: None (occurrence: None)
  Receive Date: 20040205
  Receipt Date: 20040116
  Transmission Date: 20041129
  Serious: Yes (Other)
  Sender: FDA-Public Use
  Company Number: USA030844803

PATIENT
  Age: 68 Year
  Sex: Female

DRUGS (4)
  1. FORTEO [Suspect]
     Indication: OSTEOPOROSIS
     Dosage: 20 UG/DAY
     Dates: start: 20030520
  2. LOTREL [Concomitant]
  3. PLAQUENIL [Concomitant]
  4. MOBIC [Concomitant]

REACTIONS (6)
  - BLOOD THYROID STIMULATING HORMONE INCREASED [None]
  - CHILLS [None]
  - DIZZINESS [None]
  - FEELING COLD [None]
  - FRACTURED SACRUM [None]
  - PATHOLOGICAL FRACTURE [None]
